FAERS Safety Report 5029929-0 (Version None)
Quarter: 2006Q2

REPORT INFORMATION
  Report Type: 
  Country: None (occurrence: None)
  Receive Date: 20060620
  Receipt Date: 20060522
  Transmission Date: 20061013
  Serious: Yes (Hospitalization, Disabling)
  Sender: FDA-Public Use
  Company Number: JP-JPN-A200601671

PATIENT
  Age: 45 Year
  Sex: Male
  Weight: 73 kg

DRUGS (5)
  1. PAXIL [Suspect]
     Indication: DEPRESSION
     Dosage: 20MG PER DAY
     Route: 048
     Dates: start: 20060515, end: 20060518
  2. MYSLEE [Concomitant]
     Indication: INSOMNIA
     Dosage: 10MG PER DAY
     Route: 048
     Dates: end: 20060519
  3. LOXONIN [Concomitant]
     Indication: BACK PAIN
     Dosage: 180MG PER DAY
     Route: 048
  4. MUCOSTA [Concomitant]
     Indication: GASTRITIS
     Dosage: 300MG PER DAY
     Route: 048
     Dates: end: 20060519
  5. CLOTIAZEPAM [Concomitant]
     Dates: start: 20060519

REACTIONS (10)
  - CONTRACTED BLADDER [None]
  - DYSPNOEA [None]
  - FEELING ABNORMAL [None]
  - HYPERVENTILATION [None]
  - ILL-DEFINED DISORDER [None]
  - PALPITATIONS [None]
  - PANIC ATTACK [None]
  - POLLAKIURIA [None]
  - TACHYCARDIA [None]
  - URINARY INCONTINENCE [None]
